FAERS Safety Report 20422898 (Version 1)
Quarter: 2022Q1

REPORT INFORMATION
  Report Type: Spontaneous
  Country: CN (occurrence: CN)
  Receive Date: 20220203
  Receipt Date: 20220203
  Transmission Date: 20220423
  Serious: Yes (Hospitalization, Other)
  Sender: FDA-Public Use
  Company Number: CN-PFIZER INC-202200123767

PATIENT
  Age: 59 Year
  Sex: Male
  Weight: 77.5 kg

DRUGS (4)
  1. ZYVOX [Suspect]
     Active Substance: LINEZOLID
     Indication: Therapeutic procedure
     Dosage: 600 MG, 2X/DAY
     Route: 048
     Dates: start: 20220105, end: 20220116
  2. MAI KE LUO XIN [Concomitant]
     Indication: Symptomatic treatment
     Dosage: 0.5 G, 2X/DAY  (HALF AN HOUR AFTER MEALS)
     Route: 048
     Dates: start: 20211230, end: 20220116
  3. GLUCOBAY [Concomitant]
     Active Substance: ACARBOSE
     Indication: Symptomatic treatment
     Dosage: 50 MG, 3X/DAY (WITH THE FIRST BITE OF MEAL)
     Route: 048
     Dates: start: 20211230
  4. GLUCOBAY [Concomitant]
     Active Substance: ACARBOSE
     Dosage: 100 MG, 3X/DAY
     Route: 048
     Dates: start: 20220107, end: 20220113

REACTIONS (4)
  - Nausea [Recovered/Resolved]
  - Vomiting [Recovered/Resolved]
  - Abdominal distension [Recovered/Resolved]
  - Abdominal discomfort [Recovered/Resolved]

NARRATIVE: CASE EVENT DATE: 20220110
